FAERS Safety Report 12313350 (Version 1)
Quarter: 2016Q2

REPORT INFORMATION
  Report Type: Spontaneous
  Country: US (occurrence: US)
  Receive Date: 20160428
  Receipt Date: 20160428
  Transmission Date: 20160815
  Serious: Yes (Other)
  Sender: FDA-Public Use
  Company Number: US-PFIZER INC-2016234286

PATIENT
  Sex: Female

DRUGS (7)
  1. GEODON [Suspect]
     Active Substance: ZIPRASIDONE HYDROCHLORIDE\ZIPRASIDONE MESYLATE
     Indication: BIPOLAR II DISORDER
     Dosage: 20 MG, 1X/DAY
     Route: 048
     Dates: start: 20160421
  2. TRINTELLIX [Concomitant]
     Active Substance: VORTIOXETINE HYDROBROMIDE
     Indication: DEPRESSION
  3. VESTURA [Concomitant]
     Active Substance: DROSPIRENONE\ETHINYL ESTRADIOL
     Indication: CONTRACEPTION
     Dosage: UNK
  4. TRINTELLIX [Concomitant]
     Active Substance: VORTIOXETINE HYDROBROMIDE
     Indication: BIPOLAR DISORDER
     Dosage: 10 MG, 1X/DAY
  5. LAMICTAL [Concomitant]
     Active Substance: LAMOTRIGINE
     Indication: AFFECTIVE DISORDER
  6. XANAX [Concomitant]
     Active Substance: ALPRAZOLAM
     Indication: ANXIETY
     Dosage: 0.5 MG, 3X/DAY
  7. LAMICTAL [Concomitant]
     Active Substance: LAMOTRIGINE
     Indication: BIPOLAR DISORDER
     Dosage: 100 MG, 2X/DAY

REACTIONS (6)
  - Euphoric mood [Unknown]
  - Thinking abnormal [Unknown]
  - Hypomania [Unknown]
  - Speech disorder [Unknown]
  - Logorrhoea [Unknown]
  - Overconfidence [Unknown]
